FAERS Safety Report 25093965 (Version 1)
Quarter: 2025Q1

REPORT INFORMATION
  Report Type: Spontaneous
  Country: JP (occurrence: JP)
  Receive Date: 20250319
  Receipt Date: 20250319
  Transmission Date: 20250408
  Serious: Yes (Other)
  Sender: MYLAN
  Company Number: JP-MYLANLABS-2025M1021582

PATIENT
  Age: 55 Year
  Sex: Male

DRUGS (5)
  1. VENLAFAXINE HYDROCHLORIDE [Suspect]
     Active Substance: VENLAFAXINE HYDROCHLORIDE
     Indication: Depression
  2. SULPIRIDE [Concomitant]
     Active Substance: SULPIRIDE
     Indication: Depression
     Dosage: 100 MILLIGRAM, QD
  3. ANAFRANIL [Concomitant]
     Active Substance: CLOMIPRAMINE HYDROCHLORIDE
     Indication: Depression
     Dosage: 20 MILLIGRAM, QD
  4. TRAZODONE [Concomitant]
     Active Substance: TRAZODONE HYDROCHLORIDE
     Indication: Depression
     Dosage: 25 MILLIGRAM, QD
  5. FLUNITRAZEPAM [Concomitant]
     Active Substance: FLUNITRAZEPAM
     Indication: Depression
     Dosage: 1.5 MILLIGRAM, QD

REACTIONS (2)
  - Seizure [Recovered/Resolved]
  - Altered state of consciousness [Recovered/Resolved]

NARRATIVE: CASE EVENT DATE: 20250308
